FAERS Safety Report 7353427-2 (Version None)
Quarter: 2011Q1

REPORT INFORMATION
  Report Type: 
  Country: None (occurrence: None)
  Receive Date: 20110315
  Receipt Date: 20110309
  Transmission Date: 20110831
  Serious: Yes (Hospitalization, Other)
  Sender: FDA-Public Use
  Company Number: SE-PFIZER INC-2011051368

PATIENT
  Age: 27 Year
  Sex: Male

DRUGS (2)
  1. XANOR [Suspect]
     Dosage: UNK
     Route: 048
     Dates: start: 20110128, end: 20110128
  2. SUBUTEX [Suspect]
     Dosage: UNK
     Route: 048
     Dates: start: 20110128, end: 20110128

REACTIONS (3)
  - LOSS OF CONSCIOUSNESS [None]
  - PNEUMONIA ASPIRATION [None]
  - TOXICITY TO VARIOUS AGENTS [None]
